FAERS Safety Report 7362194-8 (Version None)
Quarter: 2011Q1

REPORT INFORMATION
  Report Type: 
  Country: None (occurrence: None)
  Receive Date: 20110309
  Receipt Date: 20110117
  Transmission Date: 20110831
  Serious: Yes (Hospitalization)
  Sender: FDA-Public Use
  Company Number: PS20110077

PATIENT
  Age: 64 Year
  Sex: Female

DRUGS (1)
  1. FOSCAVIR [Suspect]
     Route: 042
     Dates: start: 20100925, end: 20101019

REACTIONS (3)
  - HYPOPHOSPHATAEMIA [None]
  - HYPOMAGNESAEMIA [None]
  - HYPOKALAEMIA [None]
